FAERS Safety Report 7441157-8 (Version None)
Quarter: 2011Q2

REPORT INFORMATION
  Report Type: 
  Country: None (occurrence: None)
  Receive Date: 20110428
  Receipt Date: 20110420
  Transmission Date: 20111010
  Serious: Yes (Other)
  Sender: FDA-Public Use
  Company Number: DE-BIOGENIDEC-2011BI014712

PATIENT
  Age: 51 Year
  Sex: Female
  Weight: 57 kg

DRUGS (5)
  1. NATALIZUMAB [Suspect]
     Dates: start: 20101213
  2. CYANOCOBALAMIN [Concomitant]
     Route: 048
     Dates: start: 20100921
  3. DYSTO LOGES [Concomitant]
     Route: 048
     Dates: start: 20110415
  4. NATALIZUMAB [Suspect]
     Indication: MULTIPLE SCLEROSIS
     Route: 042
     Dates: start: 20060907, end: 20090714
  5. FEMI LOGES [Concomitant]
     Route: 048
     Dates: start: 20110415

REACTIONS (1)
  - MALIGNANT MELANOMA [None]
